FAERS Safety Report 9909721 (Version 1)
Quarter: 2014Q1

REPORT INFORMATION
  Report Type: Spontaneous
  Country: US (occurrence: US)
  Receive Date: 20140219
  Receipt Date: 20140219
  Transmission Date: 20141002
  Serious: Yes (Other)
  Sender: FDA-Public Use
  Company Number: US-ACTAVIS-2014-02422

PATIENT
  Sex: Female

DRUGS (5)
  1. QUETIAPINE (AGPTC) [Suspect]
     Indication: BIPOLAR DISORDER
     Dosage: UNK
     Route: 065
  2. QUETIAPINE (AGPTC) [Suspect]
     Indication: ANXIETY DISORDER
  3. QUETIAPINE (AGPTC) [Suspect]
     Indication: POST-TRAUMATIC STRESS DISORDER
  4. QUETIAPINE (AGPTC) [Suspect]
     Indication: ATTENTION DEFICIT/HYPERACTIVITY DISORDER
  5. QUETIAPINE (AGPTC) [Suspect]
     Indication: DEPRESSION

REACTIONS (1)
  - Sedation [Unknown]
